FAERS Safety Report 17726404 (Version 5)
Quarter: 2021Q1

REPORT INFORMATION
  Report Type: Report from Study
  Country: None (occurrence: US)
  Receive Date: 20200430
  Receipt Date: 20210309
  Transmission Date: 20210419
  Serious: Yes (Hospitalization, Other)
  Sender: FDA-Public Use
  Company Number: US-ABBVIE-20K-163-3383521-00

PATIENT
  Age: 60 Year
  Sex: Female
  Weight: 89.89 kg

DRUGS (6)
  1. RINVOQ [Suspect]
     Active Substance: UPADACITINIB
     Route: 048
     Dates: start: 2020
  2. VITAMIN C [Concomitant]
     Active Substance: ASCORBIC ACID
     Indication: PRODUCT USED FOR UNKNOWN INDICATION
  3. RINVOQ [Suspect]
     Active Substance: UPADACITINIB
     Indication: RHEUMATOID ARTHRITIS
     Route: 048
     Dates: start: 20200103, end: 20200424
  4. FOLIC ACID. [Concomitant]
     Active Substance: FOLIC ACID
     Indication: PRODUCT USED FOR UNKNOWN INDICATION
  5. STEROIDS [Concomitant]
     Active Substance: UNSPECIFIED INGREDIENT
     Indication: PRODUCT USED FOR UNKNOWN INDICATION
  6. PROBIOTICS NOS [Concomitant]
     Active Substance: PROBIOTICS NOS
     Indication: PRODUCT USED FOR UNKNOWN INDICATION

REACTIONS (21)
  - Colitis [Not Recovered/Not Resolved]
  - Unevaluable event [Unknown]
  - Fungal oesophagitis [Not Recovered/Not Resolved]
  - Pain [Not Recovered/Not Resolved]
  - Intestinal gangrene [Recovering/Resolving]
  - Pneumonia [Recovering/Resolving]
  - Colon injury [Not Recovered/Not Resolved]
  - Clostridial sepsis [Not Recovered/Not Resolved]
  - Rash papular [Unknown]
  - Gastrointestinal disorder [Recovered/Resolved]
  - Cerebrovascular accident [Recovered/Resolved]
  - Fungal infection [Not Recovered/Not Resolved]
  - Muscle spasms [Not Recovered/Not Resolved]
  - Back disorder [Not Recovered/Not Resolved]
  - Intestinal sepsis [Recovered/Resolved]
  - Near death experience [Recovered/Resolved]
  - Inflammatory marker increased [Unknown]
  - Skin ulcer [Recovered/Resolved]
  - Fungal oesophagitis [Recovered/Resolved]
  - Adverse reaction [Not Recovered/Not Resolved]
  - Product storage error [Unknown]

NARRATIVE: CASE EVENT DATE: 2020
